FAERS Safety Report 18282949 (Version 20)
Quarter: 2024Q1

REPORT INFORMATION
  Report Type: Spontaneous
  Country: US (occurrence: US)
  Receive Date: 20200918
  Receipt Date: 20240216
  Transmission Date: 20240409
  Serious: Yes (Other)
  Sender: FDA-Public Use
  Company Number: US-PFIZER INC-2020362016

PATIENT
  Age: 67 Year
  Sex: Female
  Weight: 108.86 kg

DRUGS (2)
  1. IBRANCE [Suspect]
     Active Substance: PALBOCICLIB
     Indication: Breast cancer metastatic
     Dosage: 100 MG
  2. IBRANCE [Suspect]
     Active Substance: PALBOCICLIB
     Indication: Breast cancer female
     Dosage: 125 MG

REACTIONS (27)
  - Cataract [Unknown]
  - Rib fracture [Unknown]
  - Tooth disorder [Unknown]
  - Drug dependence [Unknown]
  - Urinary tract infection [Unknown]
  - Feeling abnormal [Unknown]
  - Insomnia [Unknown]
  - Brain fog [Unknown]
  - Abdominal hernia [Unknown]
  - Neoplasm progression [Recovering/Resolving]
  - Stress [Unknown]
  - Fear [Unknown]
  - Hunger [Unknown]
  - Weight decreased [Unknown]
  - Alopecia [Not Recovered/Not Resolved]
  - Madarosis [Not Recovered/Not Resolved]
  - Injury [Unknown]
  - Depressed mood [Unknown]
  - Emotional disorder [Unknown]
  - Overweight [Recovering/Resolving]
  - Pulmonary mass [Unknown]
  - Weight increased [Unknown]
  - Fatigue [Unknown]
  - Neuralgia [Unknown]
  - Asthenia [Unknown]
  - COVID-19 [Unknown]
  - Hyperhidrosis [Unknown]

NARRATIVE: CASE EVENT DATE: 20200901
